FAERS Safety Report 4703399-1 (Version None)
Quarter: 2005Q2

REPORT INFORMATION
  Report Type: 
  Country: None (occurrence: None)
  Receive Date: 20050624
  Receipt Date: 20050316
  Transmission Date: 20051028
  Serious: No
  Sender: FDA-Public Use
  Company Number: 2005BI003718

PATIENT
  Age: 50 Year
  Sex: Female

DRUGS (9)
  1. NATALIZUMAB [Suspect]
     Indication: MULTIPLE SCLEROSIS
     Dosage: 300 MG; QM; IV
     Route: 042
     Dates: start: 20050110, end: 20050210
  2. CELEBREX [Concomitant]
  3. DURAGESIC-100 [Concomitant]
  4. IMITREX [Concomitant]
  5. DETROL [Concomitant]
  6. AMBIEN [Concomitant]
  7. SYNTHROID [Concomitant]
  8. KEPPRA [Concomitant]
  9. ULTRAM [Concomitant]

REACTIONS (3)
  - HEADACHE [None]
  - RASH [None]
  - URTICARIA [None]
